FAERS Safety Report 10255829 (Version 1)
Quarter: 2014Q2

REPORT INFORMATION
  Report Type: Spontaneous
  Country: US (occurrence: US)
  Receive Date: 20140624
  Receipt Date: 20140624
  Transmission Date: 20141212
  Serious: Yes (Hospitalization)
  Sender: FDA-Public Use
  Company Number: US-ZOGENIX, INC.-2012ZX000022

PATIENT
  Sex: Female
  Weight: 129.39 kg

DRUGS (4)
  1. SUMAVEL DOSEPRO [Suspect]
     Indication: MIGRAINE
  2. BENAZEPRIL [Concomitant]
     Indication: BLOOD PRESSURE
     Route: 048
  3. LOSARTAN/HCTZ [Concomitant]
     Indication: BLOOD PRESSURE
     Route: 048
  4. CARVEDILOL [Concomitant]
     Indication: BLOOD PRESSURE
     Route: 048

REACTIONS (8)
  - Renal failure [Recovered/Resolved]
  - Drug ineffective [Recovered/Resolved]
  - Nausea [Recovered/Resolved]
  - Vomiting [Recovered/Resolved]
  - Injection site bruising [Recovered/Resolved]
  - Injection site haemorrhage [Recovered/Resolved]
  - Device malfunction [Recovered/Resolved]
  - Accidental exposure to product [Recovered/Resolved]
